FAERS Safety Report 22383021 (Version 1)
Quarter: 2023Q2

REPORT INFORMATION
  Report Type: Spontaneous
  Country: US (occurrence: None)
  Receive Date: 20230526
  Receipt Date: 20230526
  Transmission Date: 20230721
  Serious: Yes (Hospitalization)
  Sender: FDA-Public Use
  Company Number: None

PATIENT
  Age: 59 Year
  Sex: Male
  Weight: 73.03 kg

DRUGS (2)
  1. ENBREL [Suspect]
     Active Substance: ETANERCEPT
     Indication: Rheumatoid arthritis
     Dates: start: 202301
  2. ENBREL [Suspect]
     Active Substance: ETANERCEPT
     Indication: Osteoarthritis

REACTIONS (3)
  - Endodontic procedure [None]
  - Tooth infection [None]
  - Intentional dose omission [None]
